FAERS Safety Report 8311319-6 (Version None)
Quarter: 2012Q2

REPORT INFORMATION
  Report Type: 
  Country: None (occurrence: None)
  Receive Date: 20120425
  Receipt Date: 20120416
  Transmission Date: 20120825
  Serious: Yes (Death)
  Sender: FDA-Public Use
  Company Number: BE-GLAXOSMITHKLINE-B0762014A

PATIENT
  Sex: Male

DRUGS (3)
  1. KEPPRA [Concomitant]
     Indication: CONVULSION
     Dosage: 1000MG TWICE PER DAY
     Route: 048
  2. LAMICTAL [Suspect]
     Indication: CONVULSION
     Dosage: 50MG TWICE PER DAY
     Route: 048
     Dates: end: 20111005
  3. CLONAZEPAM [Concomitant]
     Indication: CONVULSION
     Dosage: 1MG PER DAY
     Route: 048

REACTIONS (13)
  - DRUG RASH WITH EOSINOPHILIA AND SYSTEMIC SYMPTOMS [None]
  - URTICARIA [None]
  - HYPERKALAEMIA [None]
  - HYPERSENSITIVITY [None]
  - PROTHROMBIN TIME SHORTENED [None]
  - PYREXIA [None]
  - CONDITION AGGRAVATED [None]
  - LIVER FUNCTION TEST ABNORMAL [None]
  - HYPERAMMONAEMIA [None]
  - HEPATITIS FULMINANT [None]
  - ANGIOEDEMA [None]
  - HEPATIC FUNCTION ABNORMAL [None]
  - LYMPHADENOPATHY [None]
